FAERS Safety Report 9122310 (Version 1)
Quarter: 2013Q1

REPORT INFORMATION
  Report Type: Spontaneous
  Country: GB (occurrence: GB)
  Receive Date: 20130114
  Receipt Date: 20130114
  Transmission Date: 20140127
  Serious: Yes (Hospitalization, Other)
  Sender: FDA-Public Use
  Company Number: GB-PFIZER INC-2013006716

PATIENT
  Age: 52 Year
  Sex: Male

DRUGS (7)
  1. IRINOTECAN HCL [Suspect]
     Indication: COLORECTAL CANCER METASTATIC
     Dosage: UNK
     Route: 065
  2. IRINOTECAN HCL [Suspect]
     Indication: CHEMOTHERAPY
  3. FLUOROURACIL [Suspect]
     Indication: CHEMOTHERAPY
     Dosage: UNK
     Route: 065
  4. OXALIPLATIN [Suspect]
     Indication: COLORECTAL CANCER METASTATIC
     Dosage: UNK
     Route: 065
  5. OXALIPLATIN [Suspect]
     Indication: CHEMOTHERAPY
  6. FOLINIC ACID [Suspect]
     Indication: COLORECTAL CANCER METASTATIC
     Dosage: UNK
     Route: 065
  7. FOLINIC ACID [Suspect]
     Indication: CHEMOTHERAPY

REACTIONS (1)
  - Myocardial infarction [Recovered/Resolved]
